FAERS Safety Report 15481234 (Version 3)
Quarter: 2018Q4

REPORT INFORMATION
  Report Type: Spontaneous
  Country: IT (occurrence: IT)
  Receive Date: 20181010
  Receipt Date: 20181024
  Transmission Date: 20190205
  Serious: Yes (Other)
  Sender: FDA-Public Use
  Company Number: IT-TEVA-2018-IT-962381

PATIENT
  Age: 86 Year
  Sex: Female
  Weight: 70 kg

DRUGS (5)
  1. PACLITAXEL. [Suspect]
     Active Substance: PACLITAXEL
     Indication: INVASIVE DUCTAL BREAST CARCINOMA
     Route: 040
  2. TRASTUZUMAB. [Suspect]
     Active Substance: TRASTUZUMAB
     Route: 040
     Dates: start: 20180907, end: 20180907
  3. PACLITAXEL. [Suspect]
     Active Substance: PACLITAXEL
     Route: 040
     Dates: start: 20180907, end: 20180907
  4. TAVOR (LORAZEPAM) [Concomitant]
     Active Substance: LORAZEPAM
     Route: 048
  5. TRASTUZUMAB. [Suspect]
     Active Substance: TRASTUZUMAB
     Indication: INVASIVE DUCTAL BREAST CARCINOMA
     Route: 042

REACTIONS (1)
  - Peripheral motor neuropathy [Recovering/Resolving]

NARRATIVE: CASE EVENT DATE: 20180910
